FAERS Safety Report 16171377 (Version 3)
Quarter: 2019Q3

REPORT INFORMATION
  Report Type: Spontaneous
  Country: US (occurrence: US)
  Receive Date: 20190408
  Receipt Date: 20190806
  Transmission Date: 20191004
  Serious: Yes (Other)
  Sender: FDA-Public Use
  Company Number: US-CLOVIS ONCOLOGY-CLO-2019-000638

PATIENT
  Age: 54 Year
  Sex: Female

DRUGS (4)
  1. RUBRACA [Suspect]
     Active Substance: RUCAPARIB CAMSYLATE
     Dosage: 600 MG, BID
     Route: 048
     Dates: start: 201711
  2. RUBRACA [Suspect]
     Active Substance: RUCAPARIB CAMSYLATE
     Dosage: 400 MG, BID
     Route: 048
     Dates: end: 201903
  3. RUBRACA [Suspect]
     Active Substance: RUCAPARIB CAMSYLATE
     Indication: OVARIAN CANCER
     Dosage: 600 MG, BID
     Route: 048
     Dates: start: 2018
  4. RUBRACA [Suspect]
     Active Substance: RUCAPARIB CAMSYLATE
     Dosage: 300 MG, BID
     Route: 048

REACTIONS (12)
  - Carbohydrate antigen 125 increased [Not Recovered/Not Resolved]
  - Respiratory symptom [Recovered/Resolved]
  - Eye pruritus [Unknown]
  - Nephrolithiasis [Unknown]
  - Chest discomfort [Recovered/Resolved]
  - Ill-defined disorder [Unknown]
  - Paranasal sinus discomfort [Recovered/Resolved]
  - Fatigue [Unknown]
  - Nephrolithiasis [Recovered/Resolved]
  - Ear congestion [Recovered/Resolved]
  - Malaise [Unknown]
  - Rhinorrhoea [Unknown]

NARRATIVE: CASE EVENT DATE: 201903
